FAERS Safety Report 8173581-2 (Version None)
Quarter: 2012Q1

REPORT INFORMATION
  Report Type: 
  Country: None (occurrence: None)
  Receive Date: 20120224
  Receipt Date: 20120216
  Transmission Date: 20120608
  Serious: Yes (Other)
  Sender: FDA-Public Use
  Company Number: ADR-2012-00385

PATIENT
  Sex: Male

DRUGS (2)
  1. BACLOFEN [Suspect]
     Indication: CEREBRAL PALSY
     Dosage: 134.8 MCG/DAY,  SIMPLE CONTINUOUS
  2. BACLOFEN [Suspect]
     Indication: MUSCLE SPASTICITY
     Dosage: 134.8 MCG/DAY,  SIMPLE CONTINUOUS

REACTIONS (1)
  - IMPLANT SITE EFFUSION [None]
